FAERS Safety Report 20940451 (Version 1)
Quarter: 2022Q2

REPORT INFORMATION
  Report Type: Report from Study
  Country: JP (occurrence: JP)
  Receive Date: 20220609
  Receipt Date: 20220609
  Transmission Date: 20220721
  Serious: Yes (Hospitalization, Other)
  Sender: FDA-Public Use
  Company Number: JP-BRISTOL-MYERS SQUIBB COMPANY-2022-023527

PATIENT
  Age: 62 Year
  Sex: Female
  Weight: 57.9 kg

DRUGS (15)
  1. BMS-986310 [Suspect]
     Active Substance: BMS-986310
     Indication: Colorectal cancer
     Dosage: CYCLE 1, DAY 1
     Route: 048
     Dates: start: 20211012, end: 20220410
  2. BMS-986310 [Suspect]
     Active Substance: BMS-986310
     Dosage: CYCLE 9
     Route: 048
     Dates: start: 20220330
  3. BMS-986310 [Suspect]
     Active Substance: BMS-986310
     Dosage: 40 MG, EVERYDAY
     Route: 048
     Dates: start: 20220502
  4. COMIRNATY [Suspect]
     Active Substance: TOZINAMERAN
     Indication: Colorectal cancer
     Dosage: UNK
     Route: 030
     Dates: start: 20220408
  5. CAPECITABINE [Concomitant]
     Active Substance: CAPECITABINE
     Indication: Colorectal cancer
     Dosage: 1000 MG/M2, Q12H, 14 DAYS ADMINISTRATION, 7 DAYS WITHDRAWAL
     Route: 065
     Dates: start: 20211012
  6. CAPECITABINE [Concomitant]
     Active Substance: CAPECITABINE
     Dosage: CYCLE 9
     Route: 065
     Dates: start: 20220330
  7. CAPECITABINE [Concomitant]
     Active Substance: CAPECITABINE
     Dosage: 1000 MG/M2, Q12H, 14 DAYS ADMINISTRATION, 7 DAYS WITHDRAWAL
     Route: 065
     Dates: start: 20220502
  8. LEVOTHYROXINE SODIUM [Concomitant]
     Active Substance: LEVOTHYROXINE SODIUM
     Indication: Hypothyroidism
     Dosage: 100 ?G, EVERYDAY, BEFORE SLEEP
     Route: 048
     Dates: start: 20220330, end: 20220419
  9. LEVOTHYROXINE SODIUM [Concomitant]
     Active Substance: LEVOTHYROXINE SODIUM
     Dosage: 125 ?G, EVERYDAY, BEFORE SLEEP
     Route: 048
     Dates: start: 20220420
  10. MAGNESIUM OXIDE [Concomitant]
     Active Substance: MAGNESIUM OXIDE
     Indication: Constipation prophylaxis
     Dosage: 660 MG, Q12H, AFTER BREAKFAST AND LUNCH
     Route: 048
     Dates: start: 2021
  11. BEVACIZUMAB [Concomitant]
     Active Substance: BEVACIZUMAB
     Indication: Colorectal cancer
     Route: 065
     Dates: start: 20211012
  12. BEVACIZUMAB [Concomitant]
     Active Substance: BEVACIZUMAB
     Dosage: CYCLE 9
     Route: 065
     Dates: start: 20220330
  13. BEVACIZUMAB [Concomitant]
     Active Substance: BEVACIZUMAB
     Route: 065
     Dates: start: 20220502
  14. OXALIPLATIN [Concomitant]
     Active Substance: OXALIPLATIN
     Indication: Colorectal cancer
     Route: 065
     Dates: start: 20211012
  15. NEXIUM [Concomitant]
     Active Substance: ESOMEPRAZOLE MAGNESIUM
     Indication: Prophylaxis against gastrointestinal ulcer
     Dosage: 20 MG, EVERYDAY, AFTER BREAKFAST
     Route: 048
     Dates: start: 20220330

REACTIONS (2)
  - Fulminant type 1 diabetes mellitus [Not Recovered/Not Resolved]
  - Urinary tract infection [Recovered/Resolved]

NARRATIVE: CASE EVENT DATE: 20220411
